FAERS Safety Report 9827646 (Version 2)
Quarter: 2014Q1

REPORT INFORMATION
  Report Type: Report from Study
  Country: US (occurrence: US)
  Receive Date: 20140117
  Receipt Date: 20140121
  Transmission Date: 20141002
  Serious: Yes (Other)
  Sender: FDA-Public Use
  Company Number: US-PFIZER INC-2014011731

PATIENT
  Age: 38 Year
  Sex: Female
  Weight: 113.4 kg

DRUGS (8)
  1. ZOLOFT [Suspect]
     Dosage: UNK
     Dates: end: 20131127
  2. ROBAXIN [Suspect]
     Dosage: UNK
     Dates: end: 20131127
  3. REBIF [Suspect]
     Indication: MULTIPLE SCLEROSIS
     Dosage: UNK
     Dates: end: 20131127
  4. AMPYRA [Suspect]
     Indication: MULTIPLE SCLEROSIS
     Dosage: 10 MG, 2X/DAY (Q 12HRS)
     Route: 048
     Dates: start: 2013, end: 20131127
  5. AMPYRA [Suspect]
     Indication: GAIT DISTURBANCE
  6. NORCO [Suspect]
     Dosage: UNK
     Dates: end: 20131127
  7. KLONOPIN [Suspect]
     Dosage: UNK
     Dates: end: 20131127
  8. VESICARE [Suspect]
     Dosage: UNK
     Dates: end: 20131127

REACTIONS (2)
  - Abortion spontaneous [Unknown]
  - Unintended pregnancy [Recovered/Resolved]
